FAERS Safety Report 6630282-7 (Version None)
Quarter: 2010Q1

REPORT INFORMATION
  Report Type: 
  Country: None (occurrence: None)
  Receive Date: 20100311
  Receipt Date: 20100309
  Transmission Date: 20100710
  Serious: Yes (Hospitalization)
  Sender: FDA-Public Use
  Company Number: Z0002008A

PATIENT
  Age: 64 Year
  Sex: Female
  Weight: 83.7 kg

DRUGS (3)
  1. LAPATINIB [Suspect]
     Dosage: 1500MG PER DAY
     Route: 048
     Dates: start: 20091007
  2. VINORELBINE [Suspect]
     Dosage: 20MGM2 CYCLIC
     Route: 042
     Dates: start: 20091007
  3. OXYCONTIN [Concomitant]
     Indication: PAIN
     Dosage: 10MG TWICE PER DAY
     Route: 048
     Dates: start: 20091001, end: 20091010

REACTIONS (1)
  - ABDOMINAL PAIN [None]
